FAERS Safety Report 8070861-6 (Version None)
Quarter: 2012Q1

REPORT INFORMATION
  Report Type: 
  Country: None (occurrence: None)
  Receive Date: 20120125
  Receipt Date: 20120120
  Transmission Date: 20120608
  Serious: Yes (Other)
  Sender: FDA-Public Use
  Company Number: JP-GLAXOSMITHKLINE-B0776995A

PATIENT
  Age: 5 Decade
  Sex: Male

DRUGS (4)
  1. CARBAMAZEPINE [Concomitant]
     Route: 048
  2. VALPROATE SODIUM [Concomitant]
     Route: 048
  3. LAMICTAL [Suspect]
     Indication: EPILEPSY
     Dosage: 50MG PER DAY
     Route: 048
  4. PHENYTOIN SODIUM CAP [Concomitant]
     Route: 065

REACTIONS (1)
  - AGGRESSION [None]
